FAERS Safety Report 12785499 (Version 2)
Quarter: 2016Q4

REPORT INFORMATION
  Report Type: Report from Study
  Country: AU (occurrence: AU)
  Receive Date: 20160927
  Receipt Date: 20161007
  Transmission Date: 20170207
  Serious: Yes (Other)
  Sender: FDA-Public Use
  Company Number: AU-BAYER-2016-180222

PATIENT
  Age: 71 Year
  Sex: Female

DRUGS (1)
  1. BETAFERON [Suspect]
     Active Substance: INTERFERON BETA-1B
     Indication: RELAPSING-REMITTING MULTIPLE SCLEROSIS
     Dosage: UNK UNK, QOD
     Route: 058
     Dates: start: 19991001

REACTIONS (12)
  - Cellulitis [None]
  - Stomach mass [None]
  - Staphylococcal infection [None]
  - Injection site infection [None]
  - Eosinophilic panniculitis [None]
  - Product solubility abnormal [None]
  - Eosinophilic cellulitis [None]
  - Pyrexia [None]
  - Malaise [None]
  - Discomfort [Not Recovered/Not Resolved]
  - Ascites [None]
  - Pain [Not Recovered/Not Resolved]

NARRATIVE: CASE EVENT DATE: 2016
